FAERS Safety Report 5918701-2 (Version None)
Quarter: 2008Q4

REPORT INFORMATION
  Report Type: 
  Country: None (occurrence: None)
  Receive Date: 20081015
  Receipt Date: 20080611
  Transmission Date: 20090506
  Serious: No
  Sender: FDA-Public Use
  Company Number: US-ASTRAZENECA-2008UW11789

PATIENT
  Sex: Female

DRUGS (2)
  1. SYMBICORT [Suspect]
     Dosage: 160/4.5 UG -2 PUFF BID
     Route: 055
  2. SYMBICORT [Suspect]
     Dosage: 160/4.5 UG -1 PUFF DAILY
     Route: 055

REACTIONS (3)
  - DRY MOUTH [None]
  - PALPITATIONS [None]
  - PRURITUS [None]
